FAERS Safety Report 7647703-3 (Version None)
Quarter: 2011Q3

REPORT INFORMATION
  Report Type: 
  Country: None (occurrence: None)
  Receive Date: 20110801
  Receipt Date: 20110801
  Transmission Date: 20111222
  Serious: Yes (Other)
  Sender: FDA-Public Use
  Company Number: None

PATIENT
  Age: 45 Year
  Sex: Female
  Weight: 74.842 kg

DRUGS (1)
  1. CIPROFLOXACIN HCL [Suspect]
     Indication: ANIMAL BITE
     Dosage: 500MG
     Route: 048
     Dates: start: 20110714, end: 20110717

REACTIONS (4)
  - MUSCULOSKELETAL PAIN [None]
  - TENDON PAIN [None]
  - PAIN IN EXTREMITY [None]
  - ARTHRALGIA [None]
